FAERS Safety Report 9462306 (Version 7)
Quarter: 2014Q1

REPORT INFORMATION
  Report Type: Report from Study
  Country: US (occurrence: US)
  Receive Date: 20130816
  Receipt Date: 20140116
  Transmission Date: 20141002
  Serious: No
  Sender: FDA-Public Use
  Company Number: US-VERTEX PHARMACEUTICALS INC-2013-008792

PATIENT
  Age: 63 Year
  Sex: Female
  Weight: 86.62 kg

DRUGS (3)
  1. VX-950 (TELAPREVIR) [Suspect]
     Indication: HEPATITIS C
     Dosage: 750 MG, TID
     Route: 048
     Dates: start: 20130705, end: 20130920
  2. PEGASYS [Suspect]
     Indication: HEPATITIS C
     Dosage: 180 ?G, QW
     Route: 058
     Dates: start: 20130705, end: 20131220
  3. RIBAPAK [Suspect]
     Indication: HEPATITIS C
     Dosage: 600 MG AM, 400 MG PM
     Route: 048
     Dates: start: 20130705, end: 20131220

REACTIONS (22)
  - Hypersensitivity [Unknown]
  - Photophobia [Not Recovered/Not Resolved]
  - Asthenopia [Not Recovered/Not Resolved]
  - Eye pruritus [Recovered/Resolved]
  - Musculoskeletal pain [Unknown]
  - Pain [Not Recovered/Not Resolved]
  - Alopecia [Recovered/Resolved]
  - Dyspnoea [Not Recovered/Not Resolved]
  - Aphasia [Unknown]
  - Irritability [Unknown]
  - Disturbance in attention [Unknown]
  - Gingival pain [Unknown]
  - Dyspnoea exertional [Recovered/Resolved]
  - Sensation of heaviness [Recovered/Resolved]
  - Chest discomfort [Recovered/Resolved]
  - White blood cell count decreased [Unknown]
  - Sluggishness [Recovered/Resolved]
  - Asthenia [Recovered/Resolved]
  - Fatigue [Recovered/Resolved]
  - Diarrhoea [Recovered/Resolved]
  - Pruritus [Recovered/Resolved]
  - Rash [Recovered/Resolved]
